FAERS Safety Report 21061164 (Version 5)
Quarter: 2022Q3

REPORT INFORMATION
  Report Type: Spontaneous
  Country: US (occurrence: US)
  Receive Date: 20220709
  Receipt Date: 20220819
  Transmission Date: 20221027
  Serious: Yes (Other)
  Sender: FDA-Public Use
  Company Number: US-SA-SAC20220706001118

PATIENT
  Age: 23 Year
  Sex: Female

DRUGS (3)
  1. DUPIXENT [Suspect]
     Active Substance: DUPILUMAB
     Indication: Dermatitis
     Dosage: 300 MG, QOW
     Route: 058
     Dates: start: 20210326
  2. DUPIXENT [Suspect]
     Active Substance: DUPILUMAB
     Indication: Asthma
  3. DUPIXENT [Suspect]
     Active Substance: DUPILUMAB
     Indication: Skin abrasion

REACTIONS (7)
  - Atypical pneumonia [Recovered/Resolved]
  - Immunodeficiency [Unknown]
  - Chills [Unknown]
  - Insomnia [Unknown]
  - Bronchitis [Unknown]
  - Pyrexia [Unknown]
  - Product use in unapproved indication [Unknown]
